FAERS Safety Report 20997471 (Version 1)
Quarter: 2022Q2

REPORT INFORMATION
  Report Type: Report from Study
  Country: DE (occurrence: None)
  Receive Date: 20220623
  Receipt Date: 20220623
  Transmission Date: 20220721
  Serious: Yes (Hospitalization)
  Sender: FDA-Public Use
  Company Number: DE-ROCHE-3091540

PATIENT
  Age: 69 Year
  Sex: Female
  Weight: 76 kg

DRUGS (4)
  1. OBINUTUZUMAB [Suspect]
     Active Substance: OBINUTUZUMAB
     Indication: Marginal zone lymphoma
     Dosage: MAINTENANCE PHASE (1000 MG EVERY 2ND MONTH); ON  24/JAN/2022 LAST DOSE GIVEN PRIOR TO REPORTED SAE
     Route: 042
     Dates: start: 20201221
  2. ENALAPRIL [Concomitant]
     Active Substance: ENALAPRIL
     Indication: Hypertension
     Dosage: 2 X 1 DOSAGE FORM IN 1 DAY / 2 DOSAGE FORM, 1 DF 10 MG ENALAPRIL AND 25 MG HCT
     Route: 048
     Dates: start: 1999
  3. PANTOPRAZOLE [Concomitant]
     Active Substance: PANTOPRAZOLE
     Indication: Gastrooesophageal reflux disease
     Dosage: 2 X 40 MILLIGRAM IN 1 DAY / 80 MILLIGRAM
     Route: 048
     Dates: start: 20220120
  4. METFORMIN [Concomitant]
     Active Substance: METFORMIN HYDROCHLORIDE
     Indication: Diabetes mellitus
     Dosage: 2 X1000 MILLIGRAM IN 1 DAY / 2000 MILLIGRAM
     Route: 048
     Dates: start: 1999

REACTIONS (2)
  - Pyrexia [Recovered/Resolved]
  - COVID-19 pneumonia [Recovered/Resolved]

NARRATIVE: CASE EVENT DATE: 20220408
